FAERS Safety Report 6298890-3 (Version None)
Quarter: 2009Q3

REPORT INFORMATION
  Report Type: 
  Country: None (occurrence: None)
  Receive Date: 20090804
  Receipt Date: 20090720
  Transmission Date: 20100115
  Serious: Yes (Other)
  Sender: FDA-Public Use
  Company Number: 8049531

PATIENT
  Age: 14 Year
  Sex: Female

DRUGS (10)
  1. PREDNISOLONE [Suspect]
     Indication: HEART TRANSPLANT
  2. PREDNISOLONE [Suspect]
     Indication: IMMUNOSUPPRESSION
  3. CYCLOSPORINE [Suspect]
     Indication: HEART TRANSPLANT
  4. CYCLOSPORINE [Suspect]
     Indication: IMMUNOSUPPRESSION
  5. AZATHIOPRINE [Suspect]
     Indication: HEART TRANSPLANT
  6. AZATHIOPRINE [Suspect]
     Indication: IMMUNOSUPPRESSION
  7. TACROLIMUS [Suspect]
     Indication: HEART TRANSPLANT
  8. TACROLIMUS [Suspect]
     Indication: IMMUNOSUPPRESSION
  9. TACROLIMUS [Suspect]
     Indication: HEART TRANSPLANT
  10. TACROLIMUS [Suspect]
     Indication: IMMUNOSUPPRESSION

REACTIONS (2)
  - BACK PAIN [None]
  - EPSTEIN-BARR VIRUS ASSOCIATED LYMPHOPROLIFERATIVE DISORDER [None]
